FAERS Safety Report 4996846-1 (Version None)
Quarter: 2006Q2

REPORT INFORMATION
  Report Type: 
  Country: None (occurrence: None)
  Receive Date: 20060509
  Receipt Date: 20060427
  Transmission Date: 20061013
  Serious: Yes (Hospitalization)
  Sender: FDA-Public Use
  Company Number: US-MERCK-0604USA04187

PATIENT
  Age: 49 Year
  Sex: Male
  Weight: 63 kg

DRUGS (10)
  1. VIOXX [Suspect]
     Indication: ARTHRITIS
     Route: 048
     Dates: start: 20010901, end: 20030401
  2. ALPHAGAN [Concomitant]
     Route: 065
  3. COSOPT [Concomitant]
     Route: 065
  4. TRIAMCINOLONE [Concomitant]
     Route: 065
  5. FOLIC ACID [Concomitant]
     Route: 065
  6. LOTEMAX [Concomitant]
     Route: 065
  7. LACTULOSE [Concomitant]
     Route: 065
  8. ASPIRIN [Concomitant]
     Route: 065
  9. METOPROLOL [Concomitant]
     Route: 065
  10. LIPITOR [Concomitant]
     Route: 065

REACTIONS (1)
  - MYOCARDIAL INFARCTION [None]
